FAERS Safety Report 18702005 (Version 1)
Quarter: 2021Q1

REPORT INFORMATION
  Report Type: Report from Study
  Country: None (occurrence: DE)
  Receive Date: 20210105
  Receipt Date: 20210105
  Transmission Date: 20210419
  Serious: Yes (Hospitalization)
  Sender: FDA-Public Use
  Company Number: DE-ABBVIE-21K-062-3714933-00

PATIENT
  Sex: Female

DRUGS (2)
  1. DUODOPA [Suspect]
     Active Substance: CARBIDOPA\LEVODOPA
     Indication: PARKINSON^S DISEASE
     Dosage: MD 3.5 ML, CRD 2.5 ML/H, ED 1.5 ML
     Route: 050
     Dates: start: 201905, end: 202012
  2. DUODOPA [Suspect]
     Active Substance: CARBIDOPA\LEVODOPA
     Dosage: MD 2.2 ML, CRD 2.3 ML/H, CRN 2.3 ML/H, ED 1.5 ML
     Route: 050
     Dates: start: 202012

REACTIONS (1)
  - Fall [Recovered/Resolved]
